FAERS Safety Report 15000435 (Version 1)
Quarter: 2018Q2

REPORT INFORMATION
  Report Type: Spontaneous
  Country: NL (occurrence: NL)
  Receive Date: 20180612
  Receipt Date: 20180612
  Transmission Date: 20180711
  Serious: Yes (Death)
  Sender: FDA-Public Use
  Company Number: NL-ASTRAZENECA-2018SE65469

PATIENT
  Sex: Female

DRUGS (1)
  1. FASLODEX [Suspect]
     Active Substance: FULVESTRANT
     Indication: BREAST CANCER METASTATIC
     Dosage: 500 MG (2 X 250 MG. 1 X PER 4 WEEKS)
     Route: 030
     Dates: start: 20180411

REACTIONS (3)
  - Lymphoedema [Unknown]
  - Death [Fatal]
  - Oedema [Unknown]
